FAERS Safety Report 14995172 (Version 1)
Quarter: 2018Q2

REPORT INFORMATION
  Report Type: Spontaneous
  Country: BR (occurrence: BR)
  Receive Date: 20180611
  Receipt Date: 20180611
  Transmission Date: 20180711
  Serious: Yes (Hospitalization, Other)
  Sender: FDA-Public Use
  Company Number: BR-GLAXOSMITHKLINE-BR2018GSK099301

PATIENT
  Sex: Female
  Weight: 6.25 kg

DRUGS (6)
  1. AEROLIN [Suspect]
     Active Substance: ALBUTEROL
     Indication: BRONCHIOLITIS
     Dosage: 2 DF, TID,APPLICATION
     Route: 055
     Dates: start: 20180427
  2. DECONGEX (BROMPHENIRAMINE MALEATE + PHENYLEPHRINE HYDROCHLORIDE) [Suspect]
     Active Substance: BROMPHENIRAMINE MALEATE\PHENYLEPHRINE HYDROCHLORIDE
     Indication: BRONCHIOLITIS
     Dosage: 6 G, BID
     Route: 048
  3. SINOT (AMOXICILLIN) [Suspect]
     Active Substance: AMOXICILLIN
     Indication: BRONCHIOLITIS
     Dosage: 3 ML, TID
     Route: 048
  4. FLIXOTIDE (CFC-FREE) [Suspect]
     Active Substance: FLUTICASONE PROPIONATE
     Indication: BRONCHIOLITIS
     Dosage: 1 PUFF(S), QD
     Route: 055
     Dates: start: 20180427
  5. PRELONE [Suspect]
     Active Substance: PREDNISOLONE
     Indication: BRONCHIOLITIS
     Dosage: 6 DF, UNK, DROP(S)
     Route: 048
  6. MONTELAIR [Suspect]
     Active Substance: MONTELUKAST SODIUM
     Indication: BRONCHIOLITIS
     Dosage: 1 DF, QD, SACHET
     Route: 048
     Dates: start: 20180427

REACTIONS (3)
  - Hospitalisation [Unknown]
  - Drug administered to patient of inappropriate age [Unknown]
  - Drug prescribing error [Unknown]
